FAERS Safety Report 7152854-6 (Version None)
Quarter: 2010Q4

REPORT INFORMATION
  Report Type: 
  Country: None (occurrence: None)
  Receive Date: 20101213
  Receipt Date: 20101207
  Transmission Date: 20110411
  Serious: Yes (Death, Hospitalization, Other)
  Sender: FDA-Public Use
  Company Number: PHHY2010CA83051

PATIENT
  Age: 50 Year
  Sex: Male

DRUGS (3)
  1. CYCLOSPORINE [Suspect]
     Indication: GRAFT VERSUS HOST DISEASE
  2. CYCLOSPORINE [Suspect]
     Indication: BONE MARROW TRANSPLANT
  3. CORTICOSTEROIDS [Suspect]
     Indication: GRAFT VERSUS HOST DISEASE

REACTIONS (10)
  - CANDIDIASIS [None]
  - CYTOMEGALOVIRUS VIRAEMIA [None]
  - GRAFT VERSUS HOST DISEASE [None]
  - HERPES VIRUS INFECTION [None]
  - INFECTION [None]
  - KLEBSIELLA INFECTION [None]
  - MUCOSAL INFLAMMATION [None]
  - RESPIRATORY FAILURE [None]
  - SEPSIS [None]
  - STAPHYLOCOCCAL INFECTION [None]
